FAERS Safety Report 6358614-8 (Version None)
Quarter: 2009Q3

REPORT INFORMATION
  Report Type: 
  Country: None (occurrence: None)
  Receive Date: 20090916
  Receipt Date: 20090911
  Transmission Date: 20100115
  Serious: Yes (Death, Hospitalization)
  Sender: FDA-Public Use
  Company Number: US-GILEAD-2009-0024210

PATIENT
  Sex: Male
  Weight: 70.37 kg

DRUGS (14)
  1. LETAIRIS [Suspect]
     Indication: PULMONARY ARTERIAL HYPERTENSION
     Route: 048
     Dates: start: 20090514
  2. LETAIRIS [Suspect]
     Route: 048
     Dates: start: 20080407, end: 20090513
  3. REVATIO [Concomitant]
  4. LASIX [Concomitant]
  5. LANOXIN [Concomitant]
  6. ALDACTONE [Concomitant]
  7. ZOCOR [Concomitant]
  8. AMOXICILLIN [Concomitant]
  9. ALLOPURINOL [Concomitant]
  10. DIPENTUM [Concomitant]
  11. INSPRA [Concomitant]
  12. GABAPENTIN [Concomitant]
  13. ASPIRIN [Concomitant]
  14. PRILOSEC [Concomitant]

REACTIONS (3)
  - LUNG DISORDER [None]
  - PULMONARY HYPERTENSION [None]
  - RENAL FAILURE CHRONIC [None]
